FAERS Safety Report 8977669 (Version 2)
Quarter: 2013Q1

REPORT INFORMATION
  Report Type: Spontaneous
  Country: CN (occurrence: CN)
  Receive Date: 20121220
  Receipt Date: 20130109
  Transmission Date: 20140127
  Serious: Yes (Other)
  Sender: FDA-Public Use
  Company Number: CN-GLAXOSMITHKLINE-B0854122A

PATIENT
  Age: 48 Year
  Sex: Male

DRUGS (3)
  1. CEFUROXIME SODIUM [Suspect]
     Indication: PNEUMONIA
     Dosage: 4.5G PER DAY
     Route: 042
  2. CEFTAZIDIME [Concomitant]
     Indication: PNEUMONIA
     Dosage: 5G PER DAY
     Route: 042
  3. UNKNOWN DRUG [Concomitant]

REACTIONS (7)
  - Anaphylactic reaction [Recovered/Resolved]
  - Chest discomfort [Unknown]
  - Rash macular [Unknown]
  - Dyspnoea [Unknown]
  - Palpitations [Unknown]
  - Asthenia [Unknown]
  - Urticaria [Unknown]
